FAERS Safety Report 4795295-9 (Version None)
Quarter: 2005Q4

REPORT INFORMATION
  Report Type: 
  Country: None (occurrence: None)
  Receive Date: 20051012
  Receipt Date: 20050901
  Transmission Date: 20060501
  Serious: Yes (Hospitalization, Other)
  Sender: FDA-Public Use
  Company Number: US-GLAXOSMITHKLINE-A0572752A

PATIENT
  Age: 45 Year
  Sex: Female

DRUGS (3)
  1. WELLBUTRIN [Suspect]
     Indication: DEPRESSION
     Route: 048
     Dates: start: 20040201, end: 20040501
  2. THYROID TAB [Concomitant]
  3. FEMHRT [Concomitant]

REACTIONS (11)
  - ANOREXIA [None]
  - DEPRESSION [None]
  - DRUG INEFFECTIVE [None]
  - FEELING OF DESPAIR [None]
  - HEART RATE INCREASED [None]
  - HYPERHIDROSIS [None]
  - PANIC ATTACK [None]
  - RETCHING [None]
  - SUICIDE ATTEMPT [None]
  - TREMOR [None]
  - WEIGHT DECREASED [None]
